FAERS Safety Report 13124550 (Version 2)
Quarter: 2017Q1

REPORT INFORMATION
  Report Type: Spontaneous
  Country: IT (occurrence: IT)
  Receive Date: 20170118
  Receipt Date: 20170214
  Transmission Date: 20170428
  Serious: Yes (Hospitalization, Other)
  Sender: FDA-Public Use
  Company Number: PHHY2017IT004689

PATIENT
  Age: 61 Year
  Sex: Male

DRUGS (6)
  1. SELEPARINA [Concomitant]
     Active Substance: NADROPARIN CALCIUM
     Indication: PRODUCT USED FOR UNKNOWN INDICATION
     Dosage: 1 DF, QD (0.4)
     Route: 058
  2. VOTRIENT [Suspect]
     Active Substance: PAZOPANIB HYDROCHLORIDE
     Dosage: 1 DF, QD (400 MG)
     Route: 048
  3. VOTRIENT [Suspect]
     Active Substance: PAZOPANIB HYDROCHLORIDE
     Indication: RENAL CANCER METASTATIC
     Dosage: 800 MG, QD
     Route: 048
     Dates: start: 20160125
  4. PLAVIX [Concomitant]
     Active Substance: CLOPIDOGREL BISULFATE
     Indication: ACUTE MYOCARDIAL INFARCTION
     Dosage: 1 DF, QD
     Route: 065
  5. ACETYLSALICYLIC ACID [Concomitant]
     Active Substance: ASPIRIN
     Indication: MYOCARDIAL INFARCTION
     Dosage: 100 MG, UNK
     Route: 048
     Dates: start: 20070101, end: 20160927
  6. VOTRIENT [Suspect]
     Active Substance: PAZOPANIB HYDROCHLORIDE
     Dosage: 800 MG, QD
     Route: 048
     Dates: start: 20160420, end: 20160927

REACTIONS (10)
  - Gastritis erosive [Unknown]
  - Haematemesis [Recovered/Resolved]
  - Gastritis haemorrhagic [Unknown]
  - Bone lesion [Unknown]
  - Asthenia [Unknown]
  - Oesophageal polyp [Unknown]
  - Pulmonary mass [Unknown]
  - Nausea [Unknown]
  - Oesophageal dysplasia [Unknown]
  - Vomiting [Unknown]

NARRATIVE: CASE EVENT DATE: 20160928
